FAERS Safety Report 25123579 (Version 1)
Quarter: 2025Q1

REPORT INFORMATION
  Report Type: Spontaneous
  Country: US (occurrence: US)
  Receive Date: 20250326
  Receipt Date: 20250326
  Transmission Date: 20250409
  Serious: No
  Sender: GRIFOLS
  Company Number: US-IGSA-BIG0028976

PATIENT
  Sex: Female

DRUGS (18)
  1. PROLASTIN-C LIQUID [Suspect]
     Active Substance: .ALPHA.1-PROTEINASE INHIBITOR HUMAN
     Indication: Alpha-1 antitrypsin deficiency
     Dosage: 4628 MILLIGRAM, Q.WK.
     Route: 042
     Dates: start: 201912
  2. PROLASTIN-C LIQUID [Suspect]
     Active Substance: .ALPHA.1-PROTEINASE INHIBITOR HUMAN
     Indication: Chronic obstructive pulmonary disease
  3. GABAPENTIN [Concomitant]
     Active Substance: GABAPENTIN
  4. ALBUTEROL SULFATE [Concomitant]
     Active Substance: ALBUTEROL SULFATE
  5. PROLIA [Concomitant]
     Active Substance: DENOSUMAB
  6. COMBIVENT [Concomitant]
     Active Substance: ALBUTEROL SULFATE\IPRATROPIUM BROMIDE
  7. SPIRIVA [Concomitant]
     Active Substance: TIOTROPIUM BROMIDE MONOHYDRATE
  8. LOSARTAN [Concomitant]
     Active Substance: LOSARTAN
  9. ISOSORBIDE DINITRATE [Concomitant]
     Active Substance: ISOSORBIDE DINITRATE
  10. MIRTAZAPINE [Concomitant]
     Active Substance: MIRTAZAPINE
  11. AZITHROMYCIN [Concomitant]
     Active Substance: AZITHROMYCIN
  12. LORAZEPAM [Concomitant]
     Active Substance: LORAZEPAM
  13. SPIRONOLACTONE [Concomitant]
     Active Substance: SPIRONOLACTONE
  14. ASPIRIN [Concomitant]
     Active Substance: ASPIRIN
  15. DULOXETINE [Concomitant]
     Active Substance: DULOXETINE
  16. LISINOPRIL [Concomitant]
     Active Substance: LISINOPRIL
  17. PREDNISONE [Concomitant]
     Active Substance: PREDNISONE
  18. METOPROLOL [Concomitant]
     Active Substance: METOPROLOL

REACTIONS (2)
  - Dizziness [Not Recovered/Not Resolved]
  - Intentional dose omission [Not Recovered/Not Resolved]
